FAERS Safety Report 11781886 (Version 2)
Quarter: 2016Q1

REPORT INFORMATION
  Report Type: Spontaneous
  Country: JP (occurrence: JP)
  Receive Date: 20151126
  Receipt Date: 20160115
  Transmission Date: 20160525
  Serious: Yes (Other)
  Sender: FDA-Public Use
  Company Number: JP-PFIZER INC-2015398577

PATIENT
  Age: 59 Year
  Sex: Male

DRUGS (3)
  1. ATELEC [Suspect]
     Active Substance: CILNIDIPINE
     Dosage: 10 MG, 1X/DAY
     Route: 048
  2. CARBOCYSTEINE [Concomitant]
     Active Substance: CARBOCYSTEINE
     Dosage: 500 MG, 3X/DAY
     Route: 048
  3. CARDENALIN [Suspect]
     Active Substance: DOXAZOSIN MESYLATE
     Dosage: 2 MG, 1X/DAY
     Route: 048

REACTIONS (1)
  - Haemorrhage subcutaneous [Unknown]
